FAERS Safety Report 15739784 (Version 1)
Quarter: 2018Q4

REPORT INFORMATION
  Report Type: Spontaneous
  Country: US (occurrence: US)
  Receive Date: 20181204
  Receipt Date: 20181204
  Transmission Date: 20190205
  Serious: Yes (Life-Threatening, Hospitalization)
  Sender: FDA-Public Use
  Company Number: None

PATIENT
  Age: 71 Year
  Sex: Male
  Weight: 71 kg

DRUGS (1)
  1. OXYCODONE [Suspect]
     Active Substance: OXYCODONE
     Route: 048
     Dates: start: 20181101, end: 20181102

REACTIONS (5)
  - Bradypnoea [None]
  - Pneumonia aspiration [None]
  - Hyporesponsive to stimuli [None]
  - Drug hypersensitivity [None]
  - Mental status changes [None]

NARRATIVE: CASE EVENT DATE: 20181102
